FAERS Safety Report 21000447 (Version 1)
Quarter: 2022Q2

REPORT INFORMATION
  Report Type: Other
  Country: US (occurrence: None)
  Receive Date: 20220623
  Receipt Date: 20220623
  Transmission Date: 20220721
  Serious: Yes (Hospitalization, Other)
  Sender: FDA-Public Use
  Company Number: US-ROCHE-3123794

PATIENT
  Age: 62 Year
  Sex: Male

DRUGS (1)
  1. OCREVUS [Suspect]
     Active Substance: OCRELIZUMAB
     Indication: Multiple sclerosis
     Dosage: DOT: 10/JUN/2021, 24/JUN/2021
     Route: 065
     Dates: start: 20210610

REACTIONS (3)
  - Hepatitis B [Recovered/Resolved]
  - Hepatic enzyme increased [Unknown]
  - Disability [Unknown]

NARRATIVE: CASE EVENT DATE: 20210801
